FAERS Safety Report 14974733 (Version 1)
Quarter: 2018Q2

REPORT INFORMATION
  Report Type: Spontaneous
  Country: CN (occurrence: CN)
  Receive Date: 20180605
  Receipt Date: 20180605
  Transmission Date: 20180711
  Serious: Yes (Hospitalization, Other)
  Sender: FDA-Public Use
  Company Number: CN-PFIZER INC-2018223694

PATIENT
  Age: 48 Year
  Sex: Male
  Weight: 50 kg

DRUGS (2)
  1. METHOTREXATE SODIUM. [Suspect]
     Active Substance: METHOTREXATE SODIUM
     Indication: NEOPLASM
     Dosage: 0.3 G, 1X/DAY
     Route: 041
     Dates: start: 20180305, end: 20180305
  2. CYTARABINE. [Suspect]
     Active Substance: CYTARABINE
     Indication: NEOPLASM
     Dosage: 2 G, 1X/DAY
     Route: 041
     Dates: start: 20180305, end: 20180305

REACTIONS (2)
  - C-reactive protein increased [Unknown]
  - Bone marrow failure [Recovering/Resolving]

NARRATIVE: CASE EVENT DATE: 20180310
